FAERS Safety Report 17660332 (Version 1)
Quarter: 2020Q2

REPORT INFORMATION
  Report Type: Spontaneous
  Country: DE (occurrence: DE)
  Receive Date: 20200413
  Receipt Date: 20200413
  Transmission Date: 20200713
  Serious: Yes (Hospitalization)
  Sender: FDA-Public Use
  Company Number: DE-TEVA-2020-DE-1222957

PATIENT
  Age: 82 Year
  Sex: Female

DRUGS (7)
  1. MOVICOL AROMAFREI [Concomitant]
     Dosage: 1-0-0-0, PULVER
  2. AMLODIPIN [Concomitant]
     Active Substance: AMLODIPINE BESYLATE
     Dosage: 5 MG, 0-0-1-0
  3. LORAZEPAM. [Suspect]
     Active Substance: LORAZEPAM
     Dosage: 1 MG, 0-0-1-0,
  4. ATORVASTATIN [Concomitant]
     Active Substance: ATORVASTATIN
     Dosage: 40 MG, 0-0-1-0
  5. APIXABAN [Suspect]
     Active Substance: APIXABAN
     Dosage: 5 MG, 1-0-1-0,
  6. TORASEMID [Concomitant]
     Active Substance: TORSEMIDE
     Dosage: 10 MG, 0.5-0-0-0
  7. RAMIPRIL. [Concomitant]
     Active Substance: RAMIPRIL
     Dosage: 5 MG, 1-0-0-0

REACTIONS (3)
  - Anaemia [Unknown]
  - Asthenia [Unknown]
  - Fall [Unknown]
